FAERS Safety Report 16827632 (Version 1)
Quarter: 2019Q3

REPORT INFORMATION
  Report Type: Spontaneous
  Country: US (occurrence: US)
  Receive Date: 20190919
  Receipt Date: 20190919
  Transmission Date: 20191005
  Serious: Yes (Hospitalization)
  Sender: FDA-Public Use
  Company Number: PHHY2019US212524

PATIENT
  Age: 37 Year
  Sex: Female

DRUGS (4)
  1. IBUPROFEN. [Suspect]
     Active Substance: IBUPROFEN
     Indication: PELVIC CONGESTION
     Dosage: 600 MG, Q6H (3 TIMES)
     Route: 065
  2. KETOROLAC TROMETHAMINE. [Concomitant]
     Active Substance: KETOROLAC TROMETHAMINE
     Indication: PELVIC CONGESTION
     Dosage: 60 MG, UNK
     Route: 042
  3. ACETAMINOPHEN. [Suspect]
     Active Substance: ACETAMINOPHEN
     Indication: PELVIC CONGESTION
     Dosage: UNK UNK, QD (2 DOSES)
     Route: 065
  4. IBUPROFEN. [Suspect]
     Active Substance: IBUPROFEN
     Dosage: UNK, QD (2 DOSES)
     Route: 065

REACTIONS (2)
  - Abdominal pain [Recovered/Resolved]
  - Renal infarct [Recovered/Resolved]
